FAERS Safety Report 24902103 (Version 1)
Quarter: 2025Q1

REPORT INFORMATION
  Report Type: Spontaneous
  Country: US (occurrence: US)
  Receive Date: 20250129
  Receipt Date: 20250129
  Transmission Date: 20250409
  Serious: No
  Sender: APOTEX
  Company Number: US-APOTEX-2025AP001422

PATIENT
  Age: 40 Year
  Sex: Female

DRUGS (2)
  1. ZOLPIDEM [Suspect]
     Active Substance: ZOLPIDEM TARTRATE
     Indication: Narcolepsy
     Dosage: 10 MILLIGRAM, Q.H.S.
     Route: 065
  2. PITOLISANT [Concomitant]
     Active Substance: PITOLISANT
     Indication: Narcolepsy
     Dosage: 35.6 MILLIGRAM, QD
     Route: 065

REACTIONS (2)
  - Somnambulism [Unknown]
  - Parasomnia [Unknown]
